FAERS Safety Report 25058467 (Version 1)
Quarter: 2025Q1

REPORT INFORMATION
  Report Type: Spontaneous
  Country: CA (occurrence: CA)
  Receive Date: 20250310
  Receipt Date: 20250310
  Transmission Date: 20250409
  Serious: Yes (Hospitalization)
  Sender: PFIZER
  Company Number: CA-PFIZER INC-202500052047

PATIENT
  Age: 83 Year
  Sex: Female
  Weight: 84 kg

DRUGS (20)
  1. SPIRONOLACTONE [Suspect]
     Active Substance: SPIRONOLACTONE
  2. FUROSEMIDE [Suspect]
     Active Substance: FUROSEMIDE
     Indication: Cardiac failure
     Dosage: 120 MG, 2X/DAY
     Route: 048
  3. ZAROXOLYN [Suspect]
     Active Substance: METOLAZONE
     Indication: Cardiac failure
     Dosage: 2.5 MG, 1X/DAY
     Route: 048
  4. ACETAMINOPHEN [Concomitant]
     Active Substance: ACETAMINOPHEN
  5. BISOPROLOL [Concomitant]
     Active Substance: BISOPROLOL
  6. CITALOPRAM [Concomitant]
     Active Substance: CITALOPRAM
  7. CLOTRIMAZOLE [Concomitant]
     Active Substance: CLOTRIMAZOLE
  8. COLCHICINE [Concomitant]
     Active Substance: COLCHICINE
  9. DIGOXIN [Concomitant]
     Active Substance: DIGOXIN
  10. DOCUSATE SODIUM [Concomitant]
     Active Substance: DOCUSATE SODIUM
  11. FERROUS SULFATE [Concomitant]
     Active Substance: FERROUS SULFATE
  12. HYDROCORTISONE [Concomitant]
     Active Substance: HYDROCORTISONE
  13. OLODATEROL HYDROCHLORIDE\TIOTROPIUM BROMIDE MONOHYDRATE [Concomitant]
     Active Substance: OLODATEROL HYDROCHLORIDE\TIOTROPIUM BROMIDE MONOHYDRATE
  14. MELATONIN [Concomitant]
     Active Substance: MELATONIN
  15. PANTOPRAZOLE [Concomitant]
     Active Substance: PANTOPRAZOLE
  16. POTASSIUM [Concomitant]
     Active Substance: POTASSIUM
  17. QUETIAPINE [Concomitant]
     Active Substance: QUETIAPINE
  18. RIVAROXABAN [Concomitant]
     Active Substance: RIVAROXABAN
  19. ALBUTEROL [Concomitant]
     Active Substance: ALBUTEROL
  20. ERGOCALCIFEROL [Concomitant]
     Active Substance: ERGOCALCIFEROL

REACTIONS (3)
  - Acute kidney injury [Recovered/Resolved]
  - Dizziness [Recovered/Resolved]
  - Fall [Recovered/Resolved]
